FAERS Safety Report 6244606-6 (Version None)
Quarter: 2009Q2

REPORT INFORMATION
  Report Type: 
  Country: None (occurrence: None)
  Receive Date: 20090619
  Receipt Date: 20090505
  Transmission Date: 20091009
  Serious: No
  Sender: FDA-Public Use
  Company Number: ALL1-2009-01281

PATIENT
  Age: 20 Year
  Sex: Female
  Weight: 68 kg

DRUGS (2)
  1. VYVANSE [Suspect]
     Indication: DRUG USE FOR UNKNOWN INDICATION
     Dosage: 30 MG, 1X/DAY:QD, ORAL
     Route: 048
     Dates: start: 20090401
  2. DEPO-PROVERA [Suspect]
     Indication: CONTRACEPTION
     Dosage: OTHER (EVERY 3 MONTHS), INTRAMUSCULAR
     Route: 030
     Dates: start: 20070101

REACTIONS (1)
  - MENORRHAGIA [None]
